FAERS Safety Report 14753841 (Version 2)
Quarter: 2018Q2

REPORT INFORMATION
  Report Type: Spontaneous
  Country: GB (occurrence: GB)
  Receive Date: 20180412
  Receipt Date: 20180621
  Transmission Date: 20180711
  Serious: Yes (Other)
  Sender: FDA-Public Use
  Company Number: GB-INCYTE CORPORATION-2018IN003288

PATIENT

DRUGS (1)
  1. JAKAVI [Suspect]
     Active Substance: RUXOLITINIB
     Indication: MYELOFIBROSIS
     Dosage: 5-25MG DEPENDING ON BLOOD COUNTS BID
     Route: 065
     Dates: start: 20160628, end: 201801

REACTIONS (2)
  - Vulvovaginal rash [Unknown]
  - Langerhans^ cell histiocytosis [Recovering/Resolving]

NARRATIVE: CASE EVENT DATE: 201712
